FAERS Safety Report 24584279 (Version 1)
Quarter: 2024Q4

REPORT INFORMATION
  Report Type: Spontaneous
  Country: US (occurrence: None)
  Receive Date: 20241105
  Receipt Date: 20241105
  Transmission Date: 20250115
  Serious: Yes (Life-Threatening, Hospitalization, Disabling)
  Sender: Public
  Company Number: None

PATIENT
  Age: 31 Year
  Sex: Female
  Weight: 56.25 kg

DRUGS (2)
  1. LOFEXIDINE [Suspect]
     Active Substance: LOFEXIDINE HYDROCHLORIDE
     Indication: Drug therapy
     Dosage: OTHER QUANTITY : 36 TABLET(S);?OTHER FREQUENCY : VARIABLE;?
     Route: 048
  2. SUBOXONE [Concomitant]

REACTIONS (3)
  - Dyspnoea [None]
  - Respiratory rate decreased [None]
  - Heart rate decreased [None]

NARRATIVE: CASE EVENT DATE: 20240919
